FAERS Safety Report 17272020 (Version 1)
Quarter: 2020Q1

REPORT INFORMATION
  Report Type: Spontaneous
  Country: US (occurrence: US)
  Receive Date: 20200115
  Receipt Date: 20200115
  Transmission Date: 20200409
  Serious: Yes (Other)
  Sender: FDA-Public Use
  Company Number: US-BAYER-2020-004141

PATIENT
  Age: 61 Year
  Sex: Female

DRUGS (1)
  1. BETASERON [Suspect]
     Active Substance: INTERFERON BETA-1B
     Indication: MULTIPLE SCLEROSIS
     Dosage: 0.3 MG
     Route: 058
     Dates: start: 2003

REACTIONS (7)
  - Tremor [None]
  - Seizure like phenomena [Recovered/Resolved]
  - Tremor [None]
  - Tremor [Recovered/Resolved]
  - Chest discomfort [Recovered/Resolved]
  - Pyrexia [None]
  - Heart rate increased [Recovered/Resolved]

NARRATIVE: CASE EVENT DATE: 201907
